FAERS Safety Report 6969624-1 (Version None)
Quarter: 2010Q3

REPORT INFORMATION
  Report Type: 
  Country: None (occurrence: None)
  Receive Date: 20100907
  Receipt Date: 20100901
  Transmission Date: 20110219
  Serious: Yes (Hospitalization)
  Sender: FDA-Public Use
  Company Number: US-BRISTOL-MYERS SQUIBB COMPANY-15266398

PATIENT
  Age: 33 Year
  Sex: Female
  Weight: 51 kg

DRUGS (14)
  1. IXEMPRA KIT [Suspect]
     Indication: BREAST CANCER
     Dosage: ON DAY1,8,15;TOTAL DOSE-75MG ; LAST DOSE 13MAY2010;CYCLE-28DAYS
     Route: 042
     Dates: start: 20100331
  2. BEVACIZUMAB [Suspect]
     Indication: BREAST CANCER
     Dosage: ON DAY 1, 15; CYCLE-28DAYS; COURSE-2;LAST DOSE-13MAY2010;TOTAL DOSE-1060MG
     Route: 042
     Dates: start: 20100331
  3. ATIVAN [Concomitant]
  4. CALCIUM + VITAMIN D [Concomitant]
  5. CLONAZEPAM [Concomitant]
  6. COLACE [Concomitant]
  7. MARINOL [Concomitant]
  8. OXYCODONE [Concomitant]
  9. OXYCONTIN [Concomitant]
  10. PROTONIX [Concomitant]
  11. REGLAN [Concomitant]
  12. SENOKOT [Concomitant]
  13. SERTRALINE HYDROCHLORIDE [Concomitant]
  14. ZOFRAN [Concomitant]

REACTIONS (10)
  - CHEST PAIN [None]
  - HAEMOGLOBIN DECREASED [None]
  - HYPERGLYCAEMIA [None]
  - HYPOALBUMINAEMIA [None]
  - HYPOCALCAEMIA [None]
  - INFECTION [None]
  - INTERNATIONAL NORMALISED RATIO [None]
  - LYMPHOPENIA [None]
  - NEUTROPENIA [None]
  - WHITE BLOOD CELL COUNT DECREASED [None]
